FAERS Safety Report 6095497-8 (Version None)
Quarter: 2009Q1

REPORT INFORMATION
  Report Type: 
  Country: None (occurrence: None)
  Receive Date: 20090227
  Receipt Date: 20080516
  Transmission Date: 20090719
  Serious: No
  Sender: FDA-Public Use
  Company Number: A0722608A

PATIENT
  Age: 58 Year
  Sex: Female

DRUGS (3)
  1. LAMICTAL [Suspect]
     Indication: BIPOLAR DISORDER
     Dosage: 100MG PER DAY
     Route: 048
     Dates: start: 20071201, end: 20080409
  2. LEXAPRO [Concomitant]
  3. UNKNOWN MEDICATION [Concomitant]

REACTIONS (3)
  - BRONCHOSPASM [None]
  - RASH [None]
  - RASH GENERALISED [None]
